FAERS Safety Report 6313163-8 (Version None)
Quarter: 2009Q3

REPORT INFORMATION
  Report Type: 
  Country: None (occurrence: None)
  Receive Date: 20090814
  Receipt Date: 20090814
  Transmission Date: 20100115
  Serious: Yes (Death)
  Sender: FDA-Public Use
  Company Number: None

PATIENT
  Age: 66 Year
  Sex: Male
  Weight: 65.7716 kg

DRUGS (1)
  1. METOCLOPRAMIDE HCL [Suspect]
     Indication: GASTROOESOPHAGEAL REFLUX DISEASE
     Dosage: 10 MG 2 A DAY PO
     Route: 048
     Dates: start: 20081111, end: 20090407

REACTIONS (2)
  - ADVERSE EVENT [None]
  - COMPLETED SUICIDE [None]
